FAERS Safety Report 4546277-3 (Version None)
Quarter: 2005Q1

REPORT INFORMATION
  Report Type: 
  Country: None (occurrence: None)
  Receive Date: 20050106
  Receipt Date: 20041014
  Transmission Date: 20050727
  Serious: Yes (Life-Threatening, Disabling)
  Sender: FDA-Public Use
  Company Number: US-MERCK-0410USA02285

PATIENT
  Age: 61 Year
  Sex: Female
  Weight: 123 kg

DRUGS (8)
  1. PAXIL [Concomitant]
     Route: 065
     Dates: start: 20030201
  2. DETROL [Concomitant]
     Route: 065
     Dates: start: 20030207
  3. ALBUTEROL [Concomitant]
     Route: 065
     Dates: start: 20020219
  4. DEMADEX [Concomitant]
     Route: 065
     Dates: start: 20021001
  5. MOBIC [Concomitant]
     Route: 065
     Dates: start: 20020101, end: 20020101
  6. VIOXX [Suspect]
     Indication: OSTEOARTHRITIS
     Route: 048
     Dates: end: 20020201
  7. VIOXX [Suspect]
     Route: 048
     Dates: start: 20020101, end: 20030101
  8. LOTREL [Concomitant]
     Route: 065
     Dates: start: 20020219

REACTIONS (4)
  - CARDIAC DISORDER [None]
  - CHEST PAIN [None]
  - DYSPNOEA [None]
  - VASOCONSTRICTION [None]
